FAERS Safety Report 4820079-2 (Version None)
Quarter: 2005Q4

REPORT INFORMATION
  Report Type: 
  Country: None (occurrence: None)
  Receive Date: 20051103
  Receipt Date: 20051027
  Transmission Date: 20060501
  Serious: Yes (Hospitalization)
  Sender: FDA-Public Use
  Company Number: US-ABBOTT-05P-163-0315582-00

PATIENT
  Sex: Female

DRUGS (4)
  1. HUMIRA 40 MG/ 0.8 ML PRE-FILLED SYRINGE [Suspect]
     Indication: RHEUMATOID ARTHRITIS
     Route: 058
     Dates: start: 20051011
  2. ISRADIPINE [Concomitant]
     Indication: BLOOD PRESSURE
     Dosage: TWO DAILY
     Route: 048
  3. CLONIDINE [Concomitant]
     Indication: BLOOD PRESSURE
     Route: 048
  4. METHYLPREDNISOLONE [Concomitant]
     Indication: RHEUMATOID ARTHRITIS
     Dosage: TWO DAILY
     Route: 048

REACTIONS (4)
  - ARTHRITIS INFECTIVE [None]
  - INFECTION [None]
  - PYREXIA [None]
  - WOUND DRAINAGE [None]
